FAERS Safety Report 15242583 (Version 1)
Quarter: 2018Q3

REPORT INFORMATION
  Report Type: Spontaneous
  Country: US (occurrence: US)
  Receive Date: 20180806
  Receipt Date: 20180806
  Transmission Date: 20181010
  Serious: Yes (Other)
  Sender: FDA-Public Use
  Company Number: US-BAUSCH-BL-2018-020674

PATIENT
  Age: 61 Year
  Sex: Male

DRUGS (2)
  1. WELLBUTRIN XL [Suspect]
     Active Substance: BUPROPION HYDROCHLORIDE
     Indication: EX-TOBACCO USER
     Route: 048
     Dates: start: 201806
  2. WELLBUTRIN XL [Suspect]
     Active Substance: BUPROPION HYDROCHLORIDE
     Indication: OFF LABEL USE
     Dosage: ON 31/JUL/2018, PATIENT CUT PRODUCT IN HALF TO REDUCE HIS DOSE BY HALF FOR 7 DAYS AS PER PHYSICIAN
     Route: 048
     Dates: start: 20180731

REACTIONS (5)
  - Feeling abnormal [Unknown]
  - Off label use [Not Recovered/Not Resolved]
  - Suicidal ideation [Unknown]
  - Nausea [Unknown]
  - Wrong technique in product usage process [Not Recovered/Not Resolved]

NARRATIVE: CASE EVENT DATE: 201806
